FAERS Safety Report 22093105 (Version 1)
Quarter: 2023Q1

REPORT INFORMATION
  Report Type: Spontaneous
  Country: US (occurrence: US)
  Receive Date: 20230314
  Receipt Date: 20230314
  Transmission Date: 20230417
  Serious: No
  Sender: FDA-Public Use
  Company Number: US-LANNETT COMPANY, INC.-US-2022LAN000063

PATIENT
  Sex: Male

DRUGS (5)
  1. PANTOPRAZOLE SODIUM [Suspect]
     Active Substance: PANTOPRAZOLE SODIUM
     Indication: Gastrooesophageal reflux disease
     Dosage: 40 MG ONCE DAILY IN THE MORNING
     Route: 048
     Dates: start: 2022, end: 2022
  2. ALPRAZOLAM [Concomitant]
     Active Substance: ALPRAZOLAM
     Indication: Anxiety
     Dosage: 0.5 MG, TID
  3. LEXAPRO [Concomitant]
     Active Substance: ESCITALOPRAM OXALATE
     Indication: Depression
     Dosage: 10 MILLIGRAM
     Route: 065
     Dates: start: 2021
  4. DOXEPIN [Concomitant]
     Active Substance: DOXEPIN
     Indication: Depression
     Dosage: 10 MG ONCE DAILY AT BEDTIME
     Route: 065
     Dates: start: 2021
  5. DICYCLOMINE CO [Concomitant]
     Indication: Abdominal discomfort
     Dosage: 2 TEASPOON A DAY
     Route: 065

REACTIONS (3)
  - Drug ineffective [Unknown]
  - Abdominal pain upper [Unknown]
  - Dyspepsia [Unknown]

NARRATIVE: CASE EVENT DATE: 20220101
